FAERS Safety Report 13923089 (Version 1)
Quarter: 2017Q3

REPORT INFORMATION
  Report Type: Spontaneous
  Country: US (occurrence: US)
  Receive Date: 20170831
  Receipt Date: 20170831
  Transmission Date: 20171127
  Serious: No
  Sender: FDA-Public Use
  Company Number: US-TAKEDA-2017TUS017719

PATIENT
  Sex: Male

DRUGS (2)
  1. PREVACID [Suspect]
     Active Substance: LANSOPRAZOLE
     Indication: BARRETT^S OESOPHAGUS
     Dosage: 30 MG, QD
     Route: 048
     Dates: start: 20140822
  2. TACROLIMUS. [Interacting]
     Active Substance: TACROLIMUS
     Indication: POSTOPERATIVE CARE
     Dosage: UNK
     Route: 048

REACTIONS (1)
  - Drug interaction [Unknown]
